FAERS Safety Report 25584499 (Version 1)
Quarter: 2025Q3

REPORT INFORMATION
  Report Type: Spontaneous
  Country: JP (occurrence: JP)
  Receive Date: 20250721
  Receipt Date: 20250721
  Transmission Date: 20251020
  Serious: Yes (Other)
  Sender: ORGANON
  Company Number: JP-ORGANON-O2507JPN001167

PATIENT
  Age: 8 Decade
  Sex: Female

DRUGS (1)
  1. ALENDRONATE SODIUM [Suspect]
     Active Substance: ALENDRONATE SODIUM
     Indication: Osteoporosis
     Dosage: 35 MILLIGRAM PER WEEK
     Route: 048
     Dates: start: 20190226

REACTIONS (1)
  - Incomplete spinal fusion [Unknown]

NARRATIVE: CASE EVENT DATE: 20200101
